FAERS Safety Report 12752413 (Version 2)
Quarter: 2017Q2

REPORT INFORMATION
  Report Type: Report from Study
  Country: US (occurrence: US)
  Receive Date: 20160915
  Receipt Date: 20170505
  Transmission Date: 20170830
  Serious: Yes (Other)
  Sender: FDA-Public Use
  Company Number: US-ROCHE-792283

PATIENT
  Age: 54 Year
  Sex: Female
  Weight: 43 kg

DRUGS (3)
  1. BEVACIZUMAB [Suspect]
     Active Substance: BEVACIZUMAB
     Indication: MALIGNANT NEOPLASM OF ISLETS OF LANGERHANS
     Dosage: 10 MG/KG IV OVER 30-90 MIN ON DAY 1 AND 15, LAST DOSE ADMINISTERED: 12 APRIL 2010, TOTAL DOSE:549 MG
     Route: 042
  2. TEMSIROLIMUS [Suspect]
     Active Substance: TEMSIROLIMUS
     Indication: MALIGNANT NEOPLASM OF ISLETS OF LANGERHANS
     Dosage: 25 MG IV ON DAYS 1,8, 15, 22, LAST DOSE ADMINISTERED:12 APRIL 2010, TOTAL DOSE: 20 MG?DATE OF LAST T
     Route: 042
  3. GRANISETRON [Concomitant]
     Active Substance: GRANISETRON

REACTIONS (8)
  - Asthenia [Recovered/Resolved]
  - Hyperkalaemia [Unknown]
  - Fatigue [Unknown]
  - Anaemia [Unknown]
  - Abdominal pain [Unknown]
  - Pain [Unknown]
  - Acute kidney injury [Unknown]
  - Upper gastrointestinal haemorrhage [Unknown]

NARRATIVE: CASE EVENT DATE: 20100412
